FAERS Safety Report 21164226 (Version 2)
Quarter: 2022Q3

REPORT INFORMATION
  Report Type: Report from Study
  Country: IT (occurrence: IT)
  Receive Date: 20220803
  Receipt Date: 20220805
  Transmission Date: 20221026
  Serious: Yes (Death)
  Sender: FDA-Public Use
  Company Number: IT-DECIPHERA PHARMACEUTICALS LLC-2021IT000950

PATIENT
  Sex: Male

DRUGS (4)
  1. RIPRETINIB [Suspect]
     Active Substance: RIPRETINIB
     Indication: Gastrointestinal stromal tumour
     Dosage: 150 MILLIGRAM, QD
     Route: 048
     Dates: start: 20210623, end: 2021
  2. RIPRETINIB [Suspect]
     Active Substance: RIPRETINIB
     Dosage: 300 MILLIGRAM, QD (PER DAY)
     Route: 048
     Dates: start: 20211006, end: 20220204
  3. GABAPENTIN [Concomitant]
     Active Substance: GABAPENTIN
     Indication: Product used for unknown indication
     Dosage: 900 MILLIGRAM, QD
  4. PECFENT [Concomitant]
     Active Substance: FENTANYL CITRATE
     Indication: Product used for unknown indication
     Dosage: 400 MICROGRAM

REACTIONS (2)
  - Disease progression [Fatal]
  - Extra dose administered [Unknown]

NARRATIVE: CASE EVENT DATE: 20210922
